FAERS Safety Report 8815143 (Version 1)
Quarter: 2012Q4

REPORT INFORMATION
  Report Type: 
  Country: US (occurrence: US)
  Receive Date: 20120928
  Receipt Date: 20120928
  Transmission Date: 20130627
  Serious: Yes (Death, Other)
  Sender: FDA-Public Use
  Company Number: US-ROXANE LABORATORIES, INC.-2012-EU-04866GD

PATIENT
  Age: 51 Year
  Sex: Female

DRUGS (7)
  1. PARACETAMOL [Suspect]
  2. ACETYLCYSTEINE [Suspect]
     Route: 048
  3. ACETYLCYSTEINE [Suspect]
     Route: 042
  4. CHARCOAL/SORBITOL [Suspect]
  5. RISPERIDONE [Suspect]
     Route: 048
  6. HALOPERIDOL [Suspect]
     Route: 048
  7. BENZTROPINE [Suspect]
     Route: 048

REACTIONS (9)
  - Medication error [Fatal]
  - Lethargy [Unknown]
  - Abdominal distension [Unknown]
  - Sinus tachycardia [Unknown]
  - Hypertension [Unknown]
  - Mental impairment [Unknown]
  - Blood pressure decreased [Unknown]
  - Acute respiratory distress syndrome [Unknown]
  - Ileus paralytic [Unknown]
